FAERS Safety Report 13465697 (Version 4)
Quarter: 2017Q3

REPORT INFORMATION
  Report Type: Spontaneous
  Country: IT (occurrence: IT)
  Receive Date: 20170421
  Receipt Date: 20170808
  Transmission Date: 20171127
  Serious: Yes (Other)
  Sender: FDA-Public Use
  Company Number: IT-ACCORD-049290

PATIENT
  Age: 79 Year
  Sex: Female
  Weight: 62 kg

DRUGS (4)
  1. OXALIPLATIN ACCORD [Suspect]
     Active Substance: OXALIPLATIN
     Indication: GASTRIC CANCER
     Dosage: DOSE REDUCED BY 70% IN RESPONSE TO EVENT NEUTROPENIA.?INFUSION STOPPED DUE TO INFUS. RELATED REACT.
     Route: 042
     Dates: start: 20161014
  2. ZESTORETIC [Concomitant]
     Active Substance: HYDROCHLOROTHIAZIDE\LISINOPRIL
  3. LEVOFOLINIC ACID [Suspect]
     Active Substance: LEVOLEUCOVORIN
     Indication: GASTRIC CANCER
     Dosage: DOSE REDUCED BY 70% IN RESPONSE TO EVENT NEUTROPENIA.?ALSO RECEIVED 264 MG
     Route: 042
     Dates: start: 20161014
  4. FLUOROURACIL. [Suspect]
     Active Substance: FLUOROURACIL
     Indication: GASTRIC CANCER
     Dosage: RECEIVED 3960 MG CYCLICAL IN SAME DURATION VIA IV/IV DRIP.?ALSO RECEIVED 528 MG IV BOLUS, 3160 MG I
     Route: 040
     Dates: start: 20161014

REACTIONS (14)
  - Vomiting [Recovering/Resolving]
  - Stomatitis [Recovering/Resolving]
  - Hypertension [Recovering/Resolving]
  - Dyspepsia [Recovering/Resolving]
  - Diarrhoea [Recovering/Resolving]
  - Off label use [Unknown]
  - Back pain [Recovering/Resolving]
  - Bone pain [Recovering/Resolving]
  - Neutropenia [Recovering/Resolving]
  - Infusion related reaction [Recovering/Resolving]
  - Nausea [Recovering/Resolving]
  - Constipation [Recovering/Resolving]
  - Thrombocytopenia [Recovering/Resolving]
  - Paraesthesia [Not Recovered/Not Resolved]

NARRATIVE: CASE EVENT DATE: 20161015
